FAERS Safety Report 5147278-7 (Version None)
Quarter: 2006Q4

REPORT INFORMATION
  Report Type: 
  Country: None (occurrence: None)
  Receive Date: 20061103
  Receipt Date: 20061019
  Transmission Date: 20070319
  Serious: Yes (Death)
  Sender: FDA-Public Use
  Company Number: 2006129133

PATIENT

DRUGS (3)
  1. ADRIAMYCIN PFS [Suspect]
  2. DOCETAXEL (DOCETAXEL) [Suspect]
  3. CYCLOPHOSPHAMIDE [Suspect]

REACTIONS (1)
  - DEATH [None]
